FAERS Safety Report 6156048-2 (Version None)
Quarter: 2009Q2

REPORT INFORMATION
  Report Type: 
  Country: None (occurrence: None)
  Receive Date: 20090413
  Receipt Date: 20090413
  Transmission Date: 20091009
  Serious: Yes (Other)
  Sender: FDA-Public Use
  Company Number: None

PATIENT
  Age: 40 Year
  Sex: Female
  Weight: 65.7716 kg

DRUGS (2)
  1. BOTOX [Suspect]
     Indication: SKIN COSMETIC PROCEDURE
     Dosage: 22 UNITS INJECTED ONE TIME
     Dates: start: 20090403, end: 20090403
  2. BOTOX [Suspect]
     Indication: SKIN WRINKLING
     Dosage: 22 UNITS INJECTED ONE TIME
     Dates: start: 20090403, end: 20090403

REACTIONS (5)
  - CONSTIPATION [None]
  - CRYING [None]
  - DEPRESSED MOOD [None]
  - INSOMNIA [None]
  - SUICIDAL IDEATION [None]
